FAERS Safety Report 9459078 (Version 1)
Quarter: 2013Q3

REPORT INFORMATION
  Report Type: Spontaneous
  Country: US (occurrence: US)
  Receive Date: 20130814
  Receipt Date: 20130814
  Transmission Date: 20140515
  Serious: No
  Sender: FDA-Public Use
  Company Number: US-009507513-1307USA013970

PATIENT
  Age: 15 Year
  Sex: Male

DRUGS (1)
  1. ASMANEX TWISTHALER [Suspect]
     Indication: ASTHMA
     Dosage: 220 MCG 1 STANDARD DOSE OF 60, 2 PUFFS BID
     Route: 055
     Dates: start: 20130713

REACTIONS (1)
  - Vision blurred [Recovering/Resolving]
